FAERS Safety Report 20697650 (Version 1)
Quarter: 2022Q2

REPORT INFORMATION
  Report Type: Spontaneous
  Country: IN (occurrence: IN)
  Receive Date: 20220411
  Receipt Date: 20220411
  Transmission Date: 20220721
  Serious: Yes (Other)
  Sender: FDA-Public Use
  Company Number: IN-Fresenius Kabi-FK202204265

PATIENT
  Age: 72 Year
  Sex: Male

DRUGS (5)
  1. DEXAMETHASONE [Suspect]
     Active Substance: DEXAMETHASONE
     Indication: COVID-19 pneumonia
     Dosage: HIGH-DOSE
     Route: 042
  2. TOCILIZUMAB [Suspect]
     Active Substance: TOCILIZUMAB
     Indication: Product used for unknown indication
     Dosage: 2 DOSES
     Route: 065
  3. INSULIN HUMAN/INSULIN HUMAN INJECTION, ISOPHANE [Concomitant]
     Indication: Blood glucose abnormal
     Route: 065
  4. FILGRASTIM [Concomitant]
     Active Substance: FILGRASTIM
     Indication: White blood cell count decreased
     Route: 065
  5. MEROPENEM [Concomitant]
     Active Substance: MEROPENEM
     Indication: Klebsiella sepsis
     Route: 065

REACTIONS (3)
  - Bone marrow necrosis [Unknown]
  - Disseminated intravascular coagulation [Unknown]
  - Klebsiella sepsis [Unknown]
